FAERS Safety Report 17022323 (Version 4)
Quarter: 2020Q1

REPORT INFORMATION
  Report Type: Report from Study
  Country: US (occurrence: US)
  Receive Date: 20191112
  Receipt Date: 20200207
  Transmission Date: 20200409
  Serious: Yes (Hospitalization)
  Sender: FDA-Public Use
  Company Number: US-ACTELION-A-NJ2019-189842

PATIENT
  Sex: Female
  Weight: 45.35 kg

DRUGS (7)
  1. VELETRI [Suspect]
     Active Substance: EPOPROSTENOL
     Dosage: 60 NG/KG, PER MIN
     Route: 042
  2. VELETRI [Suspect]
     Active Substance: EPOPROSTENOL
     Indication: PULMONARY HYPERTENSION
     Dosage: 70 NG/KG, PER MIN
     Route: 042
  3. VELETRI [Suspect]
     Active Substance: EPOPROSTENOL
     Dosage: 55 NG/KG, PER MIN
     Route: 042
     Dates: start: 20190416
  4. VELETRI [Suspect]
     Active Substance: EPOPROSTENOL
     Dosage: 48 NG/KG, PER MIN
     Route: 042
  5. VELETRI [Suspect]
     Active Substance: EPOPROSTENOL
     Dosage: UNK
     Route: 042
  6. FLOLAN [Suspect]
     Active Substance: EPOPROSTENOL SODIUM
     Indication: PRODUCT USED FOR UNKNOWN INDICATION
     Route: 065
  7. LETAIRIS [Concomitant]
     Active Substance: AMBRISENTAN

REACTIONS (20)
  - Productive cough [Unknown]
  - Unevaluable event [Unknown]
  - Pharyngitis streptococcal [Unknown]
  - Pain in jaw [Unknown]
  - Pyrexia [Unknown]
  - Pain in extremity [Unknown]
  - Haemoptysis [Unknown]
  - Bronchitis [Recovered/Resolved]
  - Condition aggravated [Unknown]
  - Dyspnoea exertional [Recovering/Resolving]
  - Rash erythematous [Unknown]
  - Muscle spasms [Unknown]
  - Facial paralysis [Unknown]
  - Pruritus [Unknown]
  - Heart rate increased [Unknown]
  - Diarrhoea [Unknown]
  - Eye swelling [Unknown]
  - Rash [Unknown]
  - Headache [Unknown]
  - Chills [Unknown]
